FAERS Safety Report 18322313 (Version 1)
Quarter: 2020Q3

REPORT INFORMATION
  Report Type: Other
  Country: US (occurrence: US)
  Receive Date: 20200929
  Receipt Date: 20200929
  Transmission Date: 20201103
  Serious: Yes (Other)
  Sender: FDA-Public Use
  Company Number: US-LUPIN PHARMACEUTICALS INC.-2019-00922

PATIENT
  Age: 32 Year
  Sex: Male

DRUGS (1)
  1. GAVILYTE G [Suspect]
     Active Substance: POLYETHYLENE GLYCOL 3350\POTASSIUM CHLORIDE\SODIUM BICARBONATE\SODIUM CHLORIDE\SODIUM SULFATE ANHYDROUS
     Indication: BOWEL PREPARATION
     Dosage: 236 GM
     Route: 048
     Dates: start: 20190101

REACTIONS (3)
  - Poor quality product administered [Unknown]
  - No adverse event [Unknown]
  - Product contamination microbial [Unknown]

NARRATIVE: CASE EVENT DATE: 20190101
